FAERS Safety Report 8803182 (Version 1)
Quarter: 2012Q4

REPORT INFORMATION
  Report Type: 
  Country: US (occurrence: US)
  Receive Date: 20120924
  Receipt Date: 20120924
  Transmission Date: 20130627
  Serious: Yes (Hospitalization, Disabling, Other)
  Sender: FDA-Public Use
  Company Number: US-009507513-1108USA02437

PATIENT

DRUGS (2)
  1. FOSAMAX [Suspect]
     Indication: OSTEOPOROSIS
     Dosage: 10 mg, UNK
     Route: 048
     Dates: start: 200007, end: 200209
  2. FOSAMAX [Suspect]
     Indication: OSTEOPOROSIS PROPHYLAXIS
     Dosage: 70 mg, QW
     Route: 048
     Dates: start: 200210, end: 200707

REACTIONS (15)
  - Femur fracture [Recovering/Resolving]
  - Low turnover osteopathy [Not Recovered/Not Resolved]
  - Pubis fracture [Recovering/Resolving]
  - Osteoarthritis [Not Recovered/Not Resolved]
  - Fall [Unknown]
  - Diverticulum [Unknown]
  - Haemorrhoids [Unknown]
  - Cataract [Not Recovered/Not Resolved]
  - Glaucoma [Unknown]
  - Hiatus hernia [Unknown]
  - Aortic valve incompetence [Unknown]
  - Mitral valve incompetence [Unknown]
  - Left ventricular hypertrophy [Unknown]
  - Tricuspid valve incompetence [Unknown]
  - Pulmonary hypertension [Unknown]
